FAERS Safety Report 8146279 (Version 4)
Quarter: 2014Q1

REPORT INFORMATION
  Report Type: Spontaneous
  Country: US (occurrence: US)
  Receive Date: 20110921
  Receipt Date: 20140114
  Transmission Date: 20141002
  Serious: Yes (Hospitalization, Other)
  Sender: FDA-Public Use
  Company Number: US-BAYER-2011-087460

PATIENT
  Age: 18 Year
  Sex: Female
  Weight: 53.52 kg

DRUGS (3)
  1. YAZ [Suspect]
     Dosage: UNK
     Route: 048
     Dates: start: 200101, end: 200312
  2. YASMIN [Suspect]
     Dosage: UNK
     Route: 048
     Dates: start: 200101, end: 200312
  3. ORTHO TRICYCLEN [Concomitant]

REACTIONS (6)
  - Cholecystectomy [None]
  - Gallbladder polyp [None]
  - Cholecystitis [None]
  - Injury [None]
  - Pain [None]
  - Emotional distress [None]
